FAERS Safety Report 21994062 (Version 2)
Quarter: 2023Q2

REPORT INFORMATION
  Report Type: Spontaneous
  Country: US (occurrence: None)
  Receive Date: 20230215
  Receipt Date: 20230418
  Transmission Date: 20230722
  Serious: No
  Sender: FDA-Public Use
  Company Number: 2023A026663

PATIENT

DRUGS (1)
  1. SYMBICORT [Suspect]
     Active Substance: BUDESONIDE\FORMOTEROL FUMARATE DIHYDRATE
     Indication: Asthma
     Dosage: UNKNOWN DOSE AND FREQUENCY UNKNOWN
     Route: 055

REACTIONS (6)
  - Asthma [Unknown]
  - Drug dose omission by device [Unknown]
  - Off label use [Unknown]
  - Device delivery system issue [Unknown]
  - Device failure [Unknown]
  - Device use issue [Unknown]
